FAERS Safety Report 24395820 (Version 1)
Quarter: 2024Q4

REPORT INFORMATION
  Report Type: Spontaneous
  Country: US (occurrence: None)
  Receive Date: 20241003
  Receipt Date: 20241003
  Transmission Date: 20250115
  Serious: Yes (Hospitalization)
  Sender: Public
  Company Number: None

PATIENT
  Sex: Male

DRUGS (1)
  1. CAPECITABINE [Suspect]
     Active Substance: CAPECITABINE
     Indication: Colon cancer
     Dosage: OTHER QUANTITY : 4 TAB AM AND 5 TAB PM;?FREQUENCY : AS DIRECTED;?
     Route: 048
     Dates: start: 202409

REACTIONS (1)
  - Pharyngeal swelling [None]
